FAERS Safety Report 10468160 (Version 3)
Quarter: 2015Q1

REPORT INFORMATION
  Report Type: Spontaneous
  Country: JP (occurrence: JP)
  Receive Date: 20140922
  Receipt Date: 20150123
  Transmission Date: 20150720
  Serious: Yes (Hospitalization, Other)
  Sender: FDA-Public Use
  Company Number: JP-BAXTER-2014BAX055368

PATIENT
  Age: 4 Year
  Sex: Male
  Weight: 15 kg

DRUGS (1)
  1. GAMMAGARD [Suspect]
     Active Substance: HUMAN IMMUNOGLOBULIN G
     Indication: KAWASAKI^S DISEASE
     Dosage: 2 G/KG ON DAYS 5 AND 7 OF ILLNESS
     Route: 042

REACTIONS (10)
  - Pulmonary congestion [None]
  - Tricuspid valve incompetence [None]
  - Pulmonary valve incompetence [None]
  - Cheilitis [None]
  - Myocarditis [Recovered/Resolved]
  - Lymphadenopathy [None]
  - Pyrexia [None]
  - No therapeutic response [Unknown]
  - Pericardial effusion [None]
  - Mitral valve incompetence [None]
